FAERS Safety Report 14155679 (Version 1)
Quarter: 2017Q4

REPORT INFORMATION
  Report Type: Spontaneous
  Country: US (occurrence: US)
  Receive Date: 20171103
  Receipt Date: 20171103
  Transmission Date: 20180321
  Serious: No
  Sender: FDA-Public Use
  Company Number: US-PFIZER INC-2017469412

PATIENT
  Age: 60 Year
  Sex: Female
  Weight: 72.57 kg

DRUGS (6)
  1. HYDROMORPHONE HCL [Concomitant]
     Active Substance: HYDROMORPHONE HYDROCHLORIDE
     Indication: PAIN
     Dosage: 2MG
     Dates: start: 20170928, end: 20171001
  2. CELECOXIB. [Suspect]
     Active Substance: CELECOXIB
     Indication: KNEE OPERATION
     Dosage: 200 MG, 2X/DAY(200MG CAPSULES ONCE IN MORNING AND ONCE AT NIGHT WITH FOOD)
     Dates: start: 20170928
  3. XARELTO [Concomitant]
     Active Substance: RIVAROXABAN
     Indication: THROMBOSIS
     Dosage: 10 MG, 1X/DAY
     Route: 048
     Dates: start: 20170928
  4. TRIAMTERENE AND HYDROCHLOROTHIAZID [Suspect]
     Active Substance: HYDROCHLOROTHIAZIDE\TRIAMTERENE
     Indication: FLUID RETENTION
     Dosage: [TRIAMTERENE 25MG]/[HYDROCHLOROTHIAZIDE 37.5MG], 0.5-1 EVERY OTHER DAY
  5. FAMOTIDINE. [Concomitant]
     Active Substance: FAMOTIDINE
     Dosage: 20 MG, 2X/DAY
     Route: 048
     Dates: start: 20170928
  6. SUMATRIPTAN. [Suspect]
     Active Substance: SUMATRIPTAN
     Indication: MIGRAINE
     Dosage: 50 MG (TAKE 1 EVERY TWO HOURS AS NEEDED MAXIMUM 200MG IN 24 HOURS)
     Route: 048

REACTIONS (3)
  - Chest discomfort [Unknown]
  - Feeling hot [Recovering/Resolving]
  - Erythema [Recovering/Resolving]

NARRATIVE: CASE EVENT DATE: 20171023
